FAERS Safety Report 5910863-6 (Version None)
Quarter: 2008Q4

REPORT INFORMATION
  Report Type: 
  Country: None (occurrence: None)
  Receive Date: 20081007
  Receipt Date: 20080530
  Transmission Date: 20090506
  Serious: Yes (Other)
  Sender: FDA-Public Use
  Company Number: US-ASTRAZENECA-2008UW11014

PATIENT
  Age: 69 Year
  Sex: Female
  Weight: 45.8 kg

DRUGS (4)
  1. ARIMIDEX [Suspect]
     Indication: BREAST CANCER
     Route: 048
  2. BONIVA [Concomitant]
  3. CALCIUM W/VITAMIN D [Concomitant]
  4. M.V.I. [Concomitant]

REACTIONS (2)
  - BONE DENSITY DECREASED [None]
  - HIP FRACTURE [None]
